FAERS Safety Report 17093756 (Version 4)
Quarter: 2019Q4

REPORT INFORMATION
  Report Type: Spontaneous
  Country: DE (occurrence: DE)
  Receive Date: 20191129
  Receipt Date: 20191218
  Transmission Date: 20200122
  Serious: Yes (Hospitalization, Other)
  Sender: FDA-Public Use
  Company Number: PHHY2019DE225204

PATIENT
  Age: 31 Year
  Sex: Male
  Weight: 110 kg

DRUGS (16)
  1. VALPROIC ACID. [Suspect]
     Active Substance: VALPROIC ACID
     Indication: SCHIZOPHRENIA
     Dosage: UNK
     Route: 065
  2. OLANZAPINE. [Concomitant]
     Active Substance: OLANZAPINE
     Route: 065
  3. CLOZAPINE. [Suspect]
     Active Substance: CLOZAPINE
     Indication: SCHIZOAFFECTIVE DISORDER
     Dosage: 100 MG, UNK
     Route: 065
  4. MIRTAZAPINE. [Concomitant]
     Active Substance: MIRTAZAPINE
     Indication: PRODUCT USED FOR UNKNOWN INDICATION
     Dosage: UNK
     Route: 065
  5. RISPERIDONE. [Concomitant]
     Active Substance: RISPERIDONE
     Indication: SCHIZOPHRENIA
     Dosage: UNK
     Route: 065
  6. AMISULPRIDE [Concomitant]
     Active Substance: AMISULPRIDE
     Indication: SCHIZOPHRENIA
     Dosage: UNK
     Route: 065
  7. OLANZAPINE. [Concomitant]
     Active Substance: OLANZAPINE
     Indication: SCHIZOPHRENIA
     Dosage: UNK
     Route: 065
  8. CLOZAPINE. [Suspect]
     Active Substance: CLOZAPINE
     Route: 065
  9. VENLAFAXINE [Suspect]
     Active Substance: VENLAFAXINE HYDROCHLORIDE
     Route: 065
  10. LITHIOFOR [Suspect]
     Active Substance: LITHIUM SULFATE
     Indication: SCHIZOAFFECTIVE DISORDER
     Dosage: 900 MG, UNK
     Route: 065
  11. DIPIPERON [Concomitant]
     Active Substance: PIPAMPERONE
     Indication: PRODUCT USED FOR UNKNOWN INDICATION
     Dosage: UNK
     Route: 065
  12. AMISULPRIDE [Concomitant]
     Active Substance: AMISULPRIDE
     Route: 065
  13. ARIPIPRAZOLE. [Concomitant]
     Active Substance: ARIPIPRAZOLE
     Indication: PRODUCT USED FOR UNKNOWN INDICATION
     Dosage: UNK
     Route: 065
  14. VENLAFAXINE [Suspect]
     Active Substance: VENLAFAXINE HYDROCHLORIDE
     Indication: SCHIZOAFFECTIVE DISORDER
     Dosage: 150 MG, UNK
     Route: 065
  15. DOXEPIN [Concomitant]
     Active Substance: DOXEPIN
     Indication: SCHIZOPHRENIA
     Dosage: UNK
     Route: 065
  16. MIRTAZAPINE. [Concomitant]
     Active Substance: MIRTAZAPINE
     Route: 065

REACTIONS (29)
  - Therapeutic response decreased [Recovered/Resolved]
  - Oedema peripheral [Unknown]
  - Chest pain [Recovering/Resolving]
  - Fatigue [Recovering/Resolving]
  - Antipsychotic drug level above therapeutic [Unknown]
  - Cardiomyopathy [Recovering/Resolving]
  - Inflammation [Unknown]
  - Dizziness [Unknown]
  - Product use in unapproved indication [Unknown]
  - Cardiomegaly [Unknown]
  - Cytotoxic cardiomyopathy [Unknown]
  - Left atrial dilatation [Unknown]
  - Blood pressure systolic decreased [Recovered/Resolved]
  - Pulmonary congestion [Unknown]
  - Electrocardiogram QT prolonged [Recovered/Resolved]
  - Dyspnoea [Recovering/Resolving]
  - Suicidal ideation [Unknown]
  - Left ventricular enlargement [Recovered/Resolved]
  - General physical health deterioration [Unknown]
  - Pulmonary hypertension [Unknown]
  - Drug ineffective [Unknown]
  - C-reactive protein increased [Unknown]
  - Left ventricular dysfunction [Recovering/Resolving]
  - Tachycardia [Unknown]
  - Dyspnoea exertional [Unknown]
  - Cardiac failure [Recovering/Resolving]
  - Left ventricular dilatation [Recovered/Resolved]
  - Right ventricular dilatation [Unknown]
  - Fibrosis [Unknown]
